FAERS Safety Report 6364440-6 (Version None)
Quarter: 2009Q3

REPORT INFORMATION
  Report Type: 
  Country: None (occurrence: None)
  Receive Date: 20090919
  Receipt Date: 20090721
  Transmission Date: 20100115
  Serious: No
  Sender: FDA-Public Use
  Company Number: US-ABBOTT-09P-163-0587170-00

PATIENT
  Sex: Female
  Weight: 60.836 kg

DRUGS (2)
  1. HUMIRA [Suspect]
     Indication: RHEUMATOID ARTHRITIS
     Dates: start: 20090101, end: 20090101
  2. HYDROCODONE [Concomitant]
     Indication: PAIN
     Dosage: 5/500 MG, 1/2 TAB

REACTIONS (4)
  - HYPERSENSITIVITY [None]
  - NAUSEA [None]
  - PAIN [None]
  - RASH [None]
